FAERS Safety Report 20528336 (Version 2)
Quarter: 2023Q1

REPORT INFORMATION
  Report Type: Report from Study
  Country: CN (occurrence: CN)
  Receive Date: 20220228
  Receipt Date: 20230316
  Transmission Date: 20230418
  Serious: No
  Sender: FDA-Public Use
  Company Number: CN-PFIZER INC-202200284868

PATIENT
  Age: 57 Year
  Sex: Female
  Weight: 61 kg

DRUGS (4)
  1. DACOMITINIB [Suspect]
     Active Substance: DACOMITINIB
     Dosage: 30 MG, 1X/DAY
     Route: 048
     Dates: start: 20220104
  2. FOLIC ACID [Concomitant]
     Active Substance: FOLIC ACID
     Indication: Prophylaxis
     Dosage: UNK
     Route: 048
     Dates: start: 20211224, end: 20220105
  3. TAN RE QING [Concomitant]
     Indication: Therapeutic procedure
     Dosage: INJECTION
     Route: 041
     Dates: start: 20211225, end: 20220105
  4. AMBROXOL HYDROCHLORIDE [Concomitant]
     Active Substance: AMBROXOL HYDROCHLORIDE
     Indication: Therapeutic procedure
     Dosage: UNK
     Route: 041
     Dates: start: 20211225, end: 20220105

REACTIONS (6)
  - Hepatic function abnormal [Recovered/Resolved]
  - White blood cell count decreased [Recovered/Resolved]
  - Hypokalaemia [Recovered/Resolved]
  - Diarrhoea [Recovered/Resolved]
  - Decreased appetite [Recovered/Resolved]
  - Asthenia [Recovered/Resolved]

NARRATIVE: CASE EVENT DATE: 20220106
